FAERS Safety Report 10055052 (Version 1)
Quarter: 2014Q2

REPORT INFORMATION
  Report Type: Spontaneous
  Country: US (occurrence: US)
  Receive Date: 20140402
  Receipt Date: 20140402
  Transmission Date: 20141212
  Serious: No
  Sender: FDA-Public Use
  Company Number: US-SA-2013SA134895

PATIENT
  Age: 65 Year
  Sex: Female

DRUGS (13)
  1. AUBAGIO [Suspect]
     Indication: MULTIPLE SCLEROSIS
     Route: 048
     Dates: end: 20131215
  2. HYDROCODONE W/ACETAMINOPHEN [Concomitant]
     Dates: start: 20131205
  3. CARISOPRODOL [Concomitant]
     Dates: start: 20131205
  4. AZITHROMYCIN [Concomitant]
     Dates: start: 20131105
  5. LISINOPRIL [Concomitant]
     Dates: start: 20131105
  6. LEVOTHYROXINE [Concomitant]
     Dates: start: 20131105
  7. LEVOTHYROXINE [Concomitant]
     Dates: start: 20121205
  8. FENTANYL [Concomitant]
     Dates: start: 20130419
  9. FENTANYL [Concomitant]
  10. HYDROCHLOROTHIAZIDE [Concomitant]
     Dates: start: 20121014
  11. BRONTEX [Concomitant]
     Dates: start: 20120911
  12. CELEBREX [Concomitant]
  13. AMLODIPINE BESILATE [Concomitant]

REACTIONS (4)
  - Muscle spasms [Recovering/Resolving]
  - Stomatitis [Recovering/Resolving]
  - Dizziness [Recovering/Resolving]
  - Hyperhidrosis [Recovering/Resolving]
